FAERS Safety Report 25255797 (Version 2)
Quarter: 2025Q4

REPORT INFORMATION
  Report Type: Spontaneous
  Country: EU (occurrence: EU)
  Receive Date: 20250430
  Receipt Date: 20251209
  Transmission Date: 20260118
  Serious: Yes (Other)
  Sender: CSL BEHRING
  Company Number: EU-BEH-2025199775

PATIENT
  Age: 28 Year
  Sex: Female
  Weight: 45 kg

DRUGS (5)
  1. BERINERT [Suspect]
     Active Substance: HUMAN C1-ESTERASE INHIBITOR
     Indication: Lung transplant rejection
     Dosage: 20 IU/KG
     Route: 065
     Dates: start: 20230422, end: 20230714
  2. BERINERT [Suspect]
     Active Substance: HUMAN C1-ESTERASE INHIBITOR
     Indication: Lung transplant rejection
     Dosage: 20 IU/KG
     Route: 065
     Dates: start: 20230422, end: 20230714
  3. BERINERT [Suspect]
     Active Substance: HUMAN C1-ESTERASE INHIBITOR
     Dosage: UNK
     Route: 042
     Dates: start: 202304
  4. BERINERT [Suspect]
     Active Substance: HUMAN C1-ESTERASE INHIBITOR
     Dosage: UNK
     Route: 042
     Dates: start: 202304
  5. HUMAN IMMUNOGLOBULIN G [Suspect]
     Active Substance: HUMAN IMMUNOGLOBULIN G
     Indication: Lung transplant rejection
     Route: 042

REACTIONS (6)
  - Pneumonia pseudomonal [Unknown]
  - Folliculitis [Recovered/Resolved]
  - Pneumonia pseudomonal [Recovered/Resolved]
  - Viral infection [Recovered/Resolved]
  - Off label use [Unknown]
  - Off label use [Unknown]

NARRATIVE: CASE EVENT DATE: 20230422
